FAERS Safety Report 6310941-6 (Version None)
Quarter: 2009Q3

REPORT INFORMATION
  Report Type: 
  Country: None (occurrence: None)
  Receive Date: 20090816
  Receipt Date: 20090811
  Transmission Date: 20100115
  Serious: Yes (Other)
  Sender: FDA-Public Use
  Company Number: US-ALLERGAN-0911203US

PATIENT
  Age: 45 Year
  Sex: Female

DRUGS (20)
  1. BOTOX [Suspect]
     Indication: TORTICOLLIS
     Dosage: UNK
     Route: 030
     Dates: start: 20080101, end: 20080101
  2. BOTOX [Suspect]
     Indication: MUSCLE TWITCHING
  3. BOTOX [Suspect]
     Indication: BLEPHAROSPASM
  4. BOTOX [Suspect]
     Indication: SKIN TIGHTNESS
  5. BOTOX [Suspect]
     Indication: DYSTONIA
  6. KEPPRA [Concomitant]
     Indication: NEURALGIA
  7. KEPPRA [Concomitant]
     Indication: PAIN MANAGEMENT
  8. LAMICTAL [Concomitant]
     Indication: NEURALGIA
  9. LAMICTAL [Concomitant]
     Indication: PAIN MANAGEMENT
  10. MORPHINE [Concomitant]
     Indication: PAIN
  11. HYDROMORPHONE HCL [Concomitant]
     Indication: PAIN
  12. HYDROMORPHONE HCL [Concomitant]
     Indication: PAIN MANAGEMENT
  13. VALIUM [Concomitant]
     Indication: ANXIETY
  14. VALIUM [Concomitant]
     Indication: PAIN MANAGEMENT
  15. LEVOTHYROXINE [Concomitant]
     Indication: HYPOTHYROIDISM
  16. CLONAZEPAM [Concomitant]
     Indication: ANXIETY
  17. CLONAZEPAM [Concomitant]
     Indication: MENTAL DISORDER
  18. EFFEXOR [Concomitant]
     Indication: ANXIETY
  19. EFFEXOR [Concomitant]
     Indication: MENTAL DISORDER
  20. MS CONTIN [Concomitant]

REACTIONS (2)
  - DYSPHAGIA [None]
  - FACIAL PARESIS [None]
